FAERS Safety Report 8167213-7 (Version None)
Quarter: 2012Q1

REPORT INFORMATION
  Report Type: 
  Country: None (occurrence: None)
  Receive Date: 20120221
  Receipt Date: 20120213
  Transmission Date: 20120608
  Serious: Yes (Hospitalization)
  Sender: FDA-Public Use
  Company Number: 2012MA002024

PATIENT
  Age: 78 Year
  Sex: Male

DRUGS (1)
  1. ACYCLOVIR [Suspect]
     Indication: SKIN LESION
     Dosage: 400 MG;TID

REACTIONS (6)
  - HALLUCINATION, VISUAL [None]
  - APHASIA [None]
  - INCORRECT DOSE ADMINISTERED [None]
  - ATAXIA [None]
  - COORDINATION ABNORMAL [None]
  - HAEMODIALYSIS [None]
